FAERS Safety Report 21972028 (Version 1)
Quarter: 2023Q1

REPORT INFORMATION
  Report Type: Spontaneous
  Country: US (occurrence: US)
  Receive Date: 20230209
  Receipt Date: 20230209
  Transmission Date: 20230418
  Serious: Yes (Other)
  Sender: FDA-Public Use
  Company Number: US-002147023-NVSC2023US024335

PATIENT
  Age: 11 Year
  Sex: Male

DRUGS (1)
  1. TRAMETINIB [Suspect]
     Active Substance: TRAMETINIB
     Indication: Astrocytoma, low grade
     Dosage: UNK
     Route: 065

REACTIONS (4)
  - Astrocytoma, low grade [Unknown]
  - Malignant neoplasm progression [Unknown]
  - Skin toxicity [Recovered/Resolved]
  - Product use in unapproved indication [Unknown]
